FAERS Safety Report 9361973 (Version 1)
Quarter: 2013Q2

REPORT INFORMATION
  Report Type: Report from Study
  Country: US (occurrence: US)
  Receive Date: 20130621
  Receipt Date: 20130621
  Transmission Date: 20140414
  Serious: Yes (Hospitalization, Other)
  Sender: FDA-Public Use
  Company Number: US-ABBOTT-13P-163-1104806-00

PATIENT
  Age: 39 Year
  Sex: Female

DRUGS (4)
  1. HUMIRA [Suspect]
     Indication: CONNECTIVE TISSUE DISORDER
  2. VITAMIN D [Concomitant]
     Indication: PRODUCT USED FOR UNKNOWN INDICATION
  3. VITAMIN B12 COMPLEX [Concomitant]
     Indication: PRODUCT USED FOR UNKNOWN INDICATION
  4. TOPAMAX [Concomitant]
     Indication: PRODUCT USED FOR UNKNOWN INDICATION

REACTIONS (20)
  - Fatigue [Unknown]
  - Condition aggravated [Unknown]
  - Muscle spasms [Unknown]
  - Pain [Unknown]
  - Rash [Unknown]
  - Stress [Unknown]
  - Abdominal pain [Unknown]
  - Flatulence [Unknown]
  - Abdominal distension [Unknown]
  - Discomfort [Unknown]
  - Weight decreased [Unknown]
  - Coeliac disease [Unknown]
  - Rash [Unknown]
  - Pruritus [Unknown]
  - Arthropod bite [Unknown]
  - Swelling [Unknown]
  - Immunodeficiency [Unknown]
  - Blindness [Unknown]
  - Drug ineffective [Unknown]
  - Pain [Unknown]
